FAERS Safety Report 7490369-6 (Version None)
Quarter: 2011Q2

REPORT INFORMATION
  Report Type: 
  Country: None (occurrence: None)
  Receive Date: 20110519
  Receipt Date: 20110511
  Transmission Date: 20111010
  Serious: Yes (Hospitalization)
  Sender: FDA-Public Use
  Company Number: JP-ASTELLAS-2011JP002259

PATIENT
  Sex: Female
  Weight: 48 kg

DRUGS (9)
  1. LIPITOR [Concomitant]
     Indication: DYSLIPIDAEMIA
     Dosage: 10 MG, BID
     Route: 048
     Dates: start: 20050201
  2. PLETAL [Concomitant]
     Indication: CEREBRAL INFARCTION
     Dosage: 100 MG, BID
     Route: 048
     Dates: start: 20041101
  3. MUCOSTA [Concomitant]
     Indication: GASTRITIS
     Dosage: 100 MG, UID/QD
     Route: 048
     Dates: start: 20070903
  4. KENTAN [Concomitant]
     Indication: BACK PAIN
     Dosage: 60 MG, UID/QD
     Route: 048
     Dates: start: 20070903
  5. TANNALBIN [Concomitant]
     Indication: DIARRHOEA
     Dosage: 1 G, TID
     Route: 048
     Dates: start: 20090901
  6. KEILASE [Concomitant]
     Indication: GASTRITIS
     Dosage: 1 DF, TID
     Route: 048
     Dates: start: 20100612
  7. LAC B [Concomitant]
     Indication: DIARRHOEA
     Dosage: 1 G, TID
     Route: 048
     Dates: start: 20090901
  8. VESICARE [Suspect]
     Indication: NEUROGENIC BLADDER
     Dosage: 5 MG, BID
     Route: 048
     Dates: start: 20100928, end: 20110118
  9. TOFRANIL [Suspect]
     Indication: NEUROGENIC BLADDER
     Dosage: 5 MG, UID/QD
     Route: 048
     Dates: start: 20101113, end: 20110117

REACTIONS (1)
  - LIVER DISORDER [None]
